FAERS Safety Report 10366595 (Version 2)
Quarter: 2014Q3

REPORT INFORMATION
  Report Type: Spontaneous
  Country: MT (occurrence: MT)
  Receive Date: 20140806
  Receipt Date: 20140806
  Transmission Date: 20150326
  Serious: Yes (Hospitalization, Other)
  Sender: FDA-Public Use
  Company Number: PHHY2014MT091900

PATIENT
  Age: 79 Year
  Sex: Female

DRUGS (8)
  1. SIMVASTATIN. [Concomitant]
     Active Substance: SIMVASTATIN
     Dosage: 20 MG, AT NIGHT
  2. BURINEX [Concomitant]
     Active Substance: BUMETANIDE
     Dosage: UNK UKN, UNK
  3. ATIVAN [Concomitant]
     Active Substance: LORAZEPAM
     Dosage: 2 MG, AT NIGHT
  4. ACLASTA [Suspect]
     Active Substance: ZOLEDRONIC ACID
     Indication: OSTEOPOROSIS POSTMENOPAUSAL
     Dosage: 5 MG, ONCE YEARLY
     Route: 042
     Dates: start: 2012
  5. COVERSYL [Concomitant]
     Active Substance: PERINDOPRIL
     Dosage: 4 MG, DAILY
  6. SINEMET [Concomitant]
     Active Substance: CARBIDOPA\LEVODOPA
     Dosage: UNK UKN, UNK
  7. OMEPRAZOLE. [Concomitant]
     Active Substance: OMEPRAZOLE
     Dosage: 20 MG, BID
  8. CALCIUM [Concomitant]
     Active Substance: CALCIUM
     Dosage: 800 MG, DAILY

REACTIONS (5)
  - Loss of consciousness [Recovered/Resolved]
  - Atrial fibrillation [Recovered/Resolved]
  - Dizziness [Unknown]
  - Hyperhidrosis [Unknown]
  - Syncope [Unknown]

NARRATIVE: CASE EVENT DATE: 201211
